FAERS Safety Report 20870083 (Version 2)
Quarter: 2022Q2

REPORT INFORMATION
  Report Type: Spontaneous
  Country: JP (occurrence: JP)
  Receive Date: 20220525
  Receipt Date: 20220531
  Transmission Date: 20220721
  Serious: Yes (Death, Hospitalization, Disabling, Other)
  Sender: FDA-Public Use
  Company Number: JP-MSD-2205JPN002321J

PATIENT
  Age: 94 Year
  Sex: Male
  Weight: 55 kg

DRUGS (7)
  1. JANUVIA [Suspect]
     Active Substance: SITAGLIPTIN PHOSPHATE
     Indication: Type 2 diabetes mellitus
     Dosage: UNK
     Route: 065
  2. VONOPRAZAN FUMARATE [Suspect]
     Active Substance: VONOPRAZAN FUMARATE
     Dosage: UNK
     Route: 065
  3. LINACLOTIDE [Suspect]
     Active Substance: LINACLOTIDE
     Dosage: UNK
     Route: 065
  4. ELOBIXIBAT [Suspect]
     Active Substance: ELOBIXIBAT
     Dosage: UNK
     Route: 065
  5. CILOSTAZOL [Suspect]
     Active Substance: CILOSTAZOL
     Dosage: UNK
     Route: 065
  6. DIMETHICONE [Suspect]
     Active Substance: DIMETHICONE
     Dosage: UNK
     Route: 065
  7. PANTETHINE [Suspect]
     Active Substance: PANTETHINE
     Dosage: UNK
     Route: 048

REACTIONS (10)
  - Asthenia [Fatal]
  - Hypophagia [Fatal]
  - Pneumonia staphylococcal [Fatal]
  - Pneumonia streptococcal [Fatal]
  - Fall [Unknown]
  - Fracture [Unknown]
  - Diabetes mellitus inadequate control [Unknown]
  - Hypoglycaemic coma [Unknown]
  - Oedema [Unknown]
  - Respiratory disorder [Unknown]

NARRATIVE: CASE EVENT DATE: 20220101
